FAERS Safety Report 15997733 (Version 3)
Quarter: 2019Q4

REPORT INFORMATION
  Report Type: Report from Study
  Country: US (occurrence: US)
  Receive Date: 20190222
  Receipt Date: 20191211
  Transmission Date: 20200122
  Serious: Yes (Hospitalization)
  Sender: FDA-Public Use
  Company Number: PHEH2019US007793

PATIENT
  Age: 62 Year
  Sex: Female

DRUGS (1)
  1. GILENYA [Suspect]
     Active Substance: FINGOLIMOD HYDROCHLORIDE
     Indication: MULTIPLE SCLEROSIS
     Dosage: 0.5 MG, QD
     Route: 048

REACTIONS (8)
  - Gastroenteritis viral [Unknown]
  - Arthralgia [Unknown]
  - Intraocular pressure test abnormal [Unknown]
  - Nausea [Unknown]
  - Migraine [Unknown]
  - Kidney infection [Unknown]
  - Dysphonia [Unknown]
  - Spinal pain [Unknown]

NARRATIVE: CASE EVENT DATE: 201911
